FAERS Safety Report 25907488 (Version 2)
Quarter: 2025Q4

REPORT INFORMATION
  Report Type: Spontaneous
  Country: EU (occurrence: EU)
  Receive Date: 20251010
  Receipt Date: 20251028
  Transmission Date: 20260117
  Serious: Yes (Hospitalization)
  Sender: RECORDATI
  Company Number: None

PATIENT
  Age: 20 Year
  Sex: Female
  Weight: 50 kg

DRUGS (10)
  1. COSMEGEN [Suspect]
     Active Substance: DACTINOMYCIN
     Indication: Rhabdomyosarcoma
     Dosage: 2 MILLIGRAM, TOTAL
     Route: 042
     Dates: start: 20240313, end: 20240313
  2. IFOSFAMIDE [Suspect]
     Active Substance: IFOSFAMIDE
     Indication: Rhabdomyosarcoma
     Dosage: 9.2 GRAM, UNK FREQUENCY (2000 MG, POWDER FOR PARENTERAL USE)
     Route: 042
     Dates: start: 20240313, end: 20240314
  3. DOXORUBICIN [Suspect]
     Active Substance: DOXORUBICIN
     Indication: Rhabdomyosarcoma
     Dosage: 92 MILLIGRAM, UNK FREQUENCY (2 MG/ML, SOLUTION FOR INFUSION)
     Route: 042
     Dates: start: 20240313, end: 20240314
  4. MESNA [Suspect]
     Active Substance: MESNA
     Indication: Chemotherapy side effect prophylaxis
     Dosage: 5800 MILLIGRAM, QD (100 MG/ML, SOLUTION FOR INJECTION FOR INFUSION)
     Route: 042
     Dates: start: 20240313, end: 20240314
  5. LENOGRASTIM [Suspect]
     Active Substance: LENOGRASTIM
     Indication: Colony stimulating factor therapy
     Dosage: 34 10X6 IU, ONCE A DAY
     Route: 058
  6. ACETAMINOPHEN [Suspect]
     Active Substance: ACETAMINOPHEN
     Indication: Pain
     Dosage: 1 GRAM, Q8H
     Route: 048
  7. ONDANSETRON [Suspect]
     Active Substance: ONDANSETRON
     Indication: Prophylaxis of nausea and vomiting
     Dosage: 3 DOSAGE FORM, UNK FREQUENCY (FILM-COATED TABLET 8 MG)
     Route: 048
  8. BACTRIM [Suspect]
     Active Substance: SULFAMETHOXAZOLE\TRIMETHOPRIM
     Indication: Opportunistic infection prophylaxis
     Dosage: 3 DOSAGE FORM, QW
     Route: 048
  9. VOGALENE [Suspect]
     Active Substance: METOPIMAZINE
     Indication: Prophylaxis of nausea and vomiting
     Dosage: 2 DOSAGE FORM, UNK FREQUENCY (CAPSULE 15 MG)
     Route: 048
  10. POLYETHYLENE GLYCOL 4000 [Concomitant]
     Active Substance: POLYETHYLENE GLYCOL 4000
     Indication: Product used for unknown indication
     Dosage: UNK

REACTIONS (3)
  - Pancreatitis acute [Recovered/Resolved]
  - Bone marrow failure [Recovered/Resolved]
  - Vomiting [Recovered/Resolved]

NARRATIVE: CASE EVENT DATE: 20240317
